FAERS Safety Report 25832585 (Version 1)
Quarter: 2025Q3

REPORT INFORMATION
  Report Type: Spontaneous
  Country: US (occurrence: None)
  Receive Date: 20250920
  Receipt Date: 20250920
  Transmission Date: 20251020
  Serious: Yes (Hospitalization)
  Sender: FDA-CTU
  Company Number: None

PATIENT
  Age: 82 Year
  Sex: Female
  Weight: 46.7 kg

DRUGS (6)
  1. CARBOPLATIN [Suspect]
     Active Substance: CARBOPLATIN
     Dates: end: 20241126
  2. PEMBROLIZUMAB [Suspect]
     Active Substance: PEMBROLIZUMAB
     Dates: end: 20250813
  3. ALIMTA [Suspect]
     Active Substance: PEMETREXED DISODIUM
     Dates: end: 20250610
  4. CARVEDILOL [Concomitant]
     Active Substance: CARVEDILOL
  5. GABAPENTIN [Concomitant]
     Active Substance: GABAPENTIN
  6. OLANZAPINE [Concomitant]
     Active Substance: OLANZAPINE

REACTIONS (6)
  - Hypotension [None]
  - Anaemia [None]
  - Therapy cessation [None]
  - Activities of daily living decreased [None]
  - Mobility decreased [None]
  - Presyncope [None]

NARRATIVE: CASE EVENT DATE: 20250918
